FAERS Safety Report 6171286-0 (Version None)
Quarter: 2009Q2

REPORT INFORMATION
  Report Type: 
  Country: None (occurrence: None)
  Receive Date: 20090428
  Receipt Date: 20090428
  Transmission Date: 20091009
  Serious: Yes (Hospitalization)
  Sender: FDA-Public Use
  Company Number: None

PATIENT
  Age: 24 Year
  Sex: Female
  Weight: 70.3075 kg

DRUGS (1)
  1. ADVAIR DISKUS 250/50 [Suspect]
     Indication: ASTHMA
     Dosage: 250/50 ONCE PER DAY PO
     Route: 048
     Dates: start: 20060101, end: 20090424

REACTIONS (5)
  - HEADACHE [None]
  - MYALGIA [None]
  - NAUSEA [None]
  - PNEUMONIA [None]
  - VOMITING [None]
